FAERS Safety Report 12371977 (Version 4)
Quarter: 2016Q2

REPORT INFORMATION
  Report Type: Spontaneous
  Country: IE (occurrence: IE)
  Receive Date: 20160516
  Receipt Date: 20160616
  Transmission Date: 20160815
  Serious: Yes (Death, Hospitalization)
  Sender: FDA-Public Use
  Company Number: IE-SA-2016SA093812

PATIENT
  Age: 46 Year
  Sex: Female

DRUGS (1)
  1. CLEXANE [Suspect]
     Active Substance: ENOXAPARIN SODIUM
     Indication: DEEP VEIN THROMBOSIS
     Route: 065
     Dates: start: 20140814, end: 20140814

REACTIONS (2)
  - Pulmonary embolism [Fatal]
  - Drug ineffective [Fatal]

NARRATIVE: CASE EVENT DATE: 20140815
